FAERS Safety Report 9147409 (Version 2)
Quarter: 2013Q1

REPORT INFORMATION
  Report Type: Spontaneous
  Country: JP (occurrence: JP)
  Receive Date: 20130307
  Receipt Date: 20130328
  Transmission Date: 20140127
  Serious: Yes (Hospitalization)
  Sender: FDA-Public Use
  Company Number: JP-GLAXOSMITHKLINE-B0871650A

PATIENT
  Sex: Male

DRUGS (1)
  1. AVOLVE [Suspect]
     Indication: BENIGN PROSTATIC HYPERPLASIA
     Dosage: .5MG PER DAY
     Route: 048

REACTIONS (3)
  - Leukoencephalopathy [Unknown]
  - Convulsion [Unknown]
  - Poisoning [Unknown]
